FAERS Safety Report 15099826 (Version 2)
Quarter: 2018Q3

REPORT INFORMATION
  Report Type: Spontaneous
  Country: US (occurrence: US)
  Receive Date: 20180703
  Receipt Date: 20180830
  Transmission Date: 20181010
  Serious: No
  Sender: FDA-Public Use
  Company Number: US-BIOGEN-2018BI00587469

PATIENT
  Sex: Male

DRUGS (4)
  1. AVONEX [Suspect]
     Active Substance: INTERFERON BETA-1A
     Indication: MULTIPLE SCLEROSIS
     Route: 065
     Dates: start: 20050601
  2. AVONEX [Suspect]
     Active Substance: INTERFERON BETA-1A
     Route: 065
     Dates: start: 20180629
  3. AVONEX [Suspect]
     Active Substance: INTERFERON BETA-1A
     Route: 065
     Dates: end: 20171201
  4. AVONEX [Suspect]
     Active Substance: INTERFERON BETA-1A
     Route: 030
     Dates: start: 20070919

REACTIONS (11)
  - Atrophy [Unknown]
  - Intervertebral disc protrusion [Unknown]
  - Confusional state [Unknown]
  - Asthenia [Unknown]
  - Slow speech [Unknown]
  - Central nervous system lesion [Unknown]
  - Fatigue [Unknown]
  - Cognitive disorder [Unknown]
  - Gait disturbance [Unknown]
  - Pain [Unknown]
  - Balance disorder [Unknown]
